FAERS Safety Report 12401239 (Version 1)
Quarter: 2016Q2

REPORT INFORMATION
  Report Type: Spontaneous
  Country: US (occurrence: US)
  Receive Date: 20160525
  Receipt Date: 20160525
  Transmission Date: 20160815
  Serious: Yes (Other)
  Sender: FDA-Public Use
  Company Number: US-GLAXOSMITHKLINE-US2016070954

PATIENT
  Sex: Female

DRUGS (9)
  1. PLAQUENIL [Concomitant]
     Active Substance: HYDROXYCHLOROQUINE SULFATE
  2. REMICADE [Concomitant]
     Active Substance: INFLIXIMAB
  3. SINGULAIR [Concomitant]
     Active Substance: MONTELUKAST SODIUM
  4. ALBUTEROL NEBULIZER [Concomitant]
     Active Substance: ALBUTEROL
  5. MELOXICAM. [Concomitant]
     Active Substance: MELOXICAM
  6. MUCINEX DM [Concomitant]
     Active Substance: DEXTROMETHORPHAN HYDROBROMIDE\GUAIFENESIN
  7. METHOTREXATE [Concomitant]
     Active Substance: METHOTREXATE
  8. ADVAIR DISKUS [Suspect]
     Active Substance: FLUTICASONE PROPIONATE\SALMETEROL XINAFOATE
     Indication: ASTHMA
     Dosage: 250/50MCG 1 PUFF, BID
     Route: 055
  9. PROAIR HFA [Concomitant]
     Active Substance: ALBUTEROL SULFATE

REACTIONS (10)
  - Drug ineffective [Not Recovered/Not Resolved]
  - Infection [Unknown]
  - Bronchial secretion retention [Not Recovered/Not Resolved]
  - Dysphonia [Not Recovered/Not Resolved]
  - Underdose [Not Recovered/Not Resolved]
  - Wheezing [Unknown]
  - Device use error [Unknown]
  - Therapeutic response unexpected [Unknown]
  - Pneumonia [Unknown]
  - Ill-defined disorder [Unknown]
